FAERS Safety Report 6208204-2 (Version None)
Quarter: 2009Q2

REPORT INFORMATION
  Report Type: 
  Country: None (occurrence: None)
  Receive Date: 20090529
  Receipt Date: 20090521
  Transmission Date: 20091009
  Serious: Yes (Other)
  Sender: FDA-Public Use
  Company Number: PHEH2006US13340

PATIENT
  Sex: Female

DRUGS (5)
  1. AREDIA [Suspect]
     Dosage: 45 MG, UNK
     Route: 042
     Dates: end: 20050701
  2. ZOMETA [Suspect]
     Dosage: MONTHLY
  3. TOPROL-XL [Concomitant]
  4. AMITRIPTLINE HYDROCHLORIDE TAB [Concomitant]
  5. LORTAB [Concomitant]

REACTIONS (23)
  - ANAEMIA [None]
  - ANXIETY [None]
  - BACK PAIN [None]
  - BONE DISORDER [None]
  - CELLULITIS [None]
  - COMPRESSION FRACTURE [None]
  - DECREASED INTEREST [None]
  - DEMENTIA [None]
  - EATING DISORDER [None]
  - FATIGUE [None]
  - GENERAL PHYSICAL HEALTH DETERIORATION [None]
  - HYPERTENSION [None]
  - IMPAIRED HEALING [None]
  - LYMPHADENOPATHY [None]
  - ORAL SURGERY [None]
  - OSTEOMYELITIS [None]
  - OSTEONECROSIS [None]
  - OSTEOPOROSIS [None]
  - PAIN [None]
  - PAIN IN JAW [None]
  - PYELONEPHRITIS [None]
  - SEQUESTRECTOMY [None]
  - TOOTH EXTRACTION [None]
